FAERS Safety Report 19948146 (Version 2)
Quarter: 2021Q4

REPORT INFORMATION
  Report Type: Report from Study
  Country: US (occurrence: US)
  Receive Date: 20211013
  Receipt Date: 20211229
  Transmission Date: 20220303
  Serious: Yes (Hospitalization, Other)
  Sender: FDA-Public Use
  Company Number: US-ABBVIE-21K-163-4114792-00

PATIENT
  Age: 78 Year
  Sex: Female
  Weight: 86.260 kg

DRUGS (14)
  1. HUMIRA [Suspect]
     Active Substance: ADALIMUMAB
     Indication: Product used for unknown indication
     Dosage: CF
     Route: 058
  2. ATORVASTATIN CALCIUM [Concomitant]
     Active Substance: ATORVASTATIN CALCIUM
     Indication: Product used for unknown indication
     Route: 048
  3. CYANOCOBALAMIN [Concomitant]
     Active Substance: CYANOCOBALAMIN
     Indication: Product used for unknown indication
     Dosage: 1000 MCG/ML
  4. DONEPEZIL [Concomitant]
     Active Substance: DONEPEZIL
     Indication: Product used for unknown indication
  5. FAMOTIDINE [Concomitant]
     Active Substance: FAMOTIDINE
     Indication: Product used for unknown indication
     Route: 048
  6. LEVAQUIN [Concomitant]
     Active Substance: LEVOFLOXACIN
     Indication: Product used for unknown indication
     Route: 048
     Dates: start: 20210924
  7. ESKALITH [Concomitant]
     Active Substance: LITHIUM CARBONATE
     Indication: Product used for unknown indication
     Route: 048
  8. MAGNESIUM OXIDE [Concomitant]
     Active Substance: MAGNESIUM OXIDE
     Indication: Product used for unknown indication
     Route: 048
  9. METRONIDAZOLE [Concomitant]
     Active Substance: METRONIDAZOLE
     Indication: Product used for unknown indication
     Route: 048
     Dates: start: 20210924
  10. SACCHAROMYCES CEREVISIAE [Concomitant]
     Active Substance: SACCHAROMYCES CEREVISIAE
     Indication: Product used for unknown indication
     Route: 048
  11. CLOPIDOGREL [Concomitant]
     Active Substance: CLOPIDOGREL BISULFATE
     Indication: Product used for unknown indication
  12. MAGNESIUM [Concomitant]
     Active Substance: MAGNESIUM
     Indication: Product used for unknown indication
  13. LITHIUM [Concomitant]
     Active Substance: LITHIUM
     Indication: Product used for unknown indication
  14. SYNTHROID [Concomitant]
     Active Substance: LEVOTHYROXINE SODIUM
     Indication: Product used for unknown indication
     Route: 048

REACTIONS (31)
  - Gastrointestinal obstruction [Unknown]
  - Myocardial infarction [Unknown]
  - Sepsis [Unknown]
  - Sepsis [Recovered/Resolved]
  - Escherichia infection [Recovered/Resolved]
  - Sepsis [Recovered/Resolved]
  - Chronic kidney disease [Unknown]
  - Coronary artery disease [Unknown]
  - Brachiocephalic vein thrombosis [Unknown]
  - Chills [Unknown]
  - Blood lactic acid abnormal [Unknown]
  - Blood creatinine increased [Unknown]
  - Drug hypersensitivity [Unknown]
  - Abnormal dreams [Unknown]
  - Balance disorder [Unknown]
  - Pain [Unknown]
  - Inflammation [Unknown]
  - Contrast media allergy [Unknown]
  - Confusional state [Recovered/Resolved]
  - Blood glucose decreased [Unknown]
  - Hypoglycaemia [Unknown]
  - Abdominal pain [Unknown]
  - Hypophagia [Unknown]
  - Oedema [Unknown]
  - Erythema [Unknown]
  - Tenderness [Unknown]
  - Cellulitis [Unknown]
  - Erythema [Unknown]
  - Skin warm [Unknown]
  - Dry skin [Unknown]
  - Sarcoidosis [Unknown]

NARRATIVE: CASE EVENT DATE: 20190101
